FAERS Safety Report 6096291-4 (Version None)
Quarter: 2009Q1

REPORT INFORMATION
  Report Type: 
  Country: None (occurrence: None)
  Receive Date: 20090227
  Receipt Date: 20081031
  Transmission Date: 20090719
  Serious: No
  Sender: FDA-Public Use
  Company Number: A0754436A

PATIENT
  Age: 59 Year
  Sex: Male

DRUGS (4)
  1. LAMOTRIGINE [Suspect]
     Dosage: 300MG PER DAY
     Route: 048
     Dates: start: 20080630
  2. DEPAKOTE [Concomitant]
  3. ZYPREXA [Concomitant]
  4. LOPRESSOR [Concomitant]

REACTIONS (4)
  - BODY TEMPERATURE DECREASED [None]
  - CHILLS [None]
  - PYREXIA [None]
  - WHITE BLOOD CELL COUNT DECREASED [None]
